FAERS Safety Report 11521821 (Version 1)
Quarter: 2015Q3

REPORT INFORMATION
  Report Type: Spontaneous
  Country: ES (occurrence: ES)
  Receive Date: 20150918
  Receipt Date: 20150918
  Transmission Date: 20151125
  Serious: Yes (Life-Threatening, Hospitalization)
  Sender: FDA-Public Use
  Company Number: PHHY2015ES109963

PATIENT
  Age: 79 Year
  Sex: Female

DRUGS (6)
  1. VOLTAREN [Suspect]
     Active Substance: DICLOFENAC SODIUM
     Indication: BACK PAIN
     Dosage: UNK, TID
     Route: 061
     Dates: start: 1994, end: 20140525
  2. PARACETAMOL [Suspect]
     Active Substance: ACETAMINOPHEN
     Indication: BACK PAIN
     Dosage: UNK, TID
     Route: 048
     Dates: start: 20140512, end: 20140525
  3. METAMIZOLE [Suspect]
     Active Substance: METAMIZOLE
     Indication: BACK PAIN
     Dosage: UNK, TID
     Route: 048
     Dates: start: 20140512, end: 20140525
  4. MESALAZINA [Suspect]
     Active Substance: MESALAMINE
     Indication: COLITIS ULCERATIVE
     Dosage: UNK, BID
     Route: 048
     Dates: start: 1994, end: 20140525
  5. ENALAPRIL [Suspect]
     Active Substance: ENALAPRIL
     Indication: HYPERTENSION
     Dosage: QD
     Route: 048
     Dates: start: 2010, end: 20140525
  6. SERC [Concomitant]
     Active Substance: BETAHISTINE HYDROCHLORIDE
     Indication: VERTIGO
     Dosage: UNK
     Route: 048
     Dates: start: 2011, end: 20140525

REACTIONS (1)
  - Agranulocytosis [Recovered/Resolved]

NARRATIVE: CASE EVENT DATE: 20140524
